FAERS Safety Report 11198068 (Version 1)
Quarter: 2015Q2

REPORT INFORMATION
  Report Type: Spontaneous
  Country: US (occurrence: US)
  Receive Date: 20150617
  Receipt Date: 20150617
  Transmission Date: 20150821
  Serious: No
  Sender: FDA-Public Use
  Company Number: US-009507513-1506USA007051

PATIENT
  Age: 21 Year
  Sex: Female
  Weight: 57.14 kg

DRUGS (1)
  1. NEXPLANON [Suspect]
     Active Substance: ETONOGESTREL
     Indication: CONTRACEPTION
     Dosage: UNK
     Route: 059
     Dates: start: 20140210

REACTIONS (5)
  - Menorrhagia [Unknown]
  - Headache [Unknown]
  - Acne [Unknown]
  - Vaginal discharge [Unknown]
  - Dizziness [Unknown]

NARRATIVE: CASE EVENT DATE: 20140210
